FAERS Safety Report 19967007 (Version 1)
Quarter: 2021Q4

REPORT INFORMATION
  Report Type: Report from Study
  Country: BE (occurrence: BE)
  Receive Date: 20211019
  Receipt Date: 20211019
  Transmission Date: 20220304
  Serious: Yes (Other)
  Sender: FDA-Public Use
  Company Number: BE-002147023-NVSC2021BE234024

PATIENT
  Sex: Female

DRUGS (1)
  1. AIMOVIG [Suspect]
     Active Substance: ERENUMAB-AOOE
     Indication: Migraine
     Dosage: 140 MILLIGRAM
     Route: 065
     Dates: start: 20210921, end: 20211008

REACTIONS (12)
  - Rheumatoid arthritis [Unknown]
  - Pain [Unknown]
  - Concomitant disease progression [Unknown]
  - Abdominal pain [Unknown]
  - Binge eating [Unknown]
  - Myalgia [Unknown]
  - Arthralgia [Unknown]
  - Muscle twitching [Unknown]
  - Vascular pain [Unknown]
  - Constipation [Unknown]
  - Muscle spasms [Unknown]
  - Headache [Unknown]
